FAERS Safety Report 14271257 (Version 2)
Quarter: 2017Q4

REPORT INFORMATION
  Report Type: Spontaneous
  Country: GB (occurrence: GB)
  Receive Date: 20171211
  Receipt Date: 20171218
  Transmission Date: 20180321
  Serious: Yes (Other)
  Sender: FDA-Public Use
  Company Number: GB-OTSUKA-2015_011271

PATIENT
  Sex: Male

DRUGS (1)
  1. ABILIFY [Suspect]
     Active Substance: ARIPIPRAZOLE
     Indication: SCHIZOPHRENIA
     Dosage: 10 MG, QD (5280780A-E34E-3790-A78B-898554D40DD6)
     Route: 048

REACTIONS (3)
  - Psychotic disorder [Unknown]
  - Wrong technique in product usage process [Unknown]
  - Insomnia [Unknown]

NARRATIVE: CASE EVENT DATE: 20150929
